FAERS Safety Report 17967895 (Version 1)
Quarter: 2020Q2

REPORT INFORMATION
  Report Type: Spontaneous
  Country: US (occurrence: US)
  Receive Date: 20200630
  Receipt Date: 20200630
  Transmission Date: 20200714
  Serious: Yes (Hospitalization)
  Sender: FDA-Public Use
  Company Number: None

PATIENT
  Age: 31 Year
  Sex: Male
  Weight: 56.4 kg

DRUGS (1)
  1. TACROLIMUS. [Suspect]
     Active Substance: TACROLIMUS
     Indication: RENAL TRANSPLANT
     Route: 048
     Dates: start: 20200610, end: 20200612

REACTIONS (6)
  - Atypical haemolytic uraemic syndrome [None]
  - Thrombotic microangiopathy [None]
  - False positive investigation result [None]
  - Thrombocytopenia [None]
  - Anaemia [None]
  - ADAMTS13 activity abnormal [None]

NARRATIVE: CASE EVENT DATE: 20200612
